FAERS Safety Report 6590236-6 (Version None)
Quarter: 2010Q1

REPORT INFORMATION
  Report Type: 
  Country: None (occurrence: None)
  Receive Date: 20100212
  Receipt Date: 20100127
  Transmission Date: 20100710
  Serious: Yes (Other)
  Sender: FDA-Public Use
  Company Number: 230654J10USA

PATIENT
  Age: 67 Year
  Sex: Female

DRUGS (3)
  1. REBIF [Suspect]
     Indication: MULTIPLE SCLEROSIS
     Dosage: 44 MCG, 3 IN 1 WEEKS, SUBCUTANEOUS
     Route: 058
     Dates: start: 20070101
  2. LISINOPRIL [Concomitant]
  3. LEVOTHYROXINE (LEVOTHYROXINE /00068001/) [Concomitant]

REACTIONS (11)
  - BONE ATROPHY [None]
  - CARPAL TUNNEL SYNDROME [None]
  - HYPOAESTHESIA [None]
  - MUSCULOSKELETAL DISORDER [None]
  - NERVE COMPRESSION [None]
  - NEUROPATHY PERIPHERAL [None]
  - SENSORY DISTURBANCE [None]
  - TENDERNESS [None]
  - TINEL'S SIGN [None]
  - TRIGGER FINGER [None]
  - UNEVALUABLE EVENT [None]
